FAERS Safety Report 14665420 (Version 2)
Quarter: 2018Q1

REPORT INFORMATION
  Report Type: Spontaneous
  Country: US (occurrence: US)
  Receive Date: 20180321
  Receipt Date: 20180322
  Transmission Date: 20180509
  Serious: No
  Sender: FDA-Public Use
  Company Number: US-PFIZER INC-2018115821

PATIENT
  Age: 31 Year
  Sex: Male

DRUGS (2)
  1. ZOLOFT [Concomitant]
     Active Substance: SERTRALINE HYDROCHLORIDE
     Dosage: UNK
  2. GEODON [Suspect]
     Active Substance: ZIPRASIDONE HYDROCHLORIDE\ZIPRASIDONE MESYLATE
     Indication: ANXIETY
     Dosage: 20 MG, SINGLE
     Route: 030
     Dates: start: 201803

REACTIONS (7)
  - Product use in unapproved indication [Unknown]
  - Wound [Unknown]
  - Depression [Unknown]
  - Feeling abnormal [Unknown]
  - Tardive dyskinesia [Unknown]
  - Lethargy [Unknown]
  - Muscle twitching [Unknown]

NARRATIVE: CASE EVENT DATE: 201803
